FAERS Safety Report 7383133-X (Version None)
Quarter: 2011Q1

REPORT INFORMATION
  Report Type: 
  Country: None (occurrence: None)
  Receive Date: 20110330
  Receipt Date: 20110328
  Transmission Date: 20110831
  Serious: Yes (Death, Hospitalization, Other)
  Sender: FDA-Public Use
  Company Number: US-AMGEN-USASP2010000363

PATIENT
  Age: 62 Year
  Sex: Male

DRUGS (4)
  1. NPLATE [Suspect]
     Indication: THROMBOCYTOPENIA
     Dosage: UNK
     Dates: start: 20100402, end: 20100708
  2. NPLATE [Suspect]
     Dates: start: 20100405, end: 20100701
  3. RED BLOOD CELLS [Concomitant]
  4. PLATELETS [Concomitant]

REACTIONS (5)
  - DEATH [None]
  - DRUG INEFFECTIVE [None]
  - HAEMORRHAGE [None]
  - HOSPITALISATION [None]
  - MYELODYSPLASTIC SYNDROME [None]
